FAERS Safety Report 7795995-2 (Version None)
Quarter: 2011Q4

REPORT INFORMATION
  Report Type: 
  Country: None (occurrence: None)
  Receive Date: 20111004
  Receipt Date: 20110921
  Transmission Date: 20120403
  Serious: No
  Sender: FDA-Public Use
  Company Number: US-B.I. PHARMACEUTICALS,INC./RIDGEFIELD-2011-BP-22635BP

PATIENT
  Sex: Female

DRUGS (14)
  1. DIOVAN [Concomitant]
     Indication: HYPERTENSION
     Dosage: 320 MG
  2. CO ENZYME B B50 COMPLEX [Concomitant]
     Indication: VITAMIN B COMPLEX DEFICIENCY
  3. CATAPRES [Suspect]
     Dosage: 0.9 MG
     Route: 048
     Dates: start: 20110901
  4. VIT B12 [Concomitant]
     Indication: VITAMIN B COMPLEX DEFICIENCY
  5. PROBIOTICS [Concomitant]
     Indication: IRRITABLE BOWEL SYNDROME
  6. HORMONES [Concomitant]
     Indication: HYSTERECTOMY
  7. CATAPRES [Suspect]
     Indication: HYPERTENSION
     Dosage: 0.9 MG
     Route: 048
     Dates: end: 20110801
  8. TENORMIN [Concomitant]
     Indication: HYPERTENSION
  9. XANAX [Concomitant]
     Indication: ANXIETY
  10. FOLIC ACID [Concomitant]
  11. ASPIRIN [Concomitant]
     Indication: PROPHYLAXIS
     Dosage: 81 MG
  12. THYROID TAB [Concomitant]
     Indication: HYPOTHYROIDISM
  13. CALCIUM CITRATE [Concomitant]
     Indication: PROPHYLAXIS
  14. VIT D3 [Concomitant]
     Indication: PROPHYLAXIS

REACTIONS (1)
  - SOMNOLENCE [None]
